FAERS Safety Report 9602215 (Version 2)
Quarter: 2013Q4

REPORT INFORMATION
  Report Type: Spontaneous
  Country: JP (occurrence: JP)
  Receive Date: 20131007
  Receipt Date: 20131022
  Transmission Date: 20140711
  Serious: Yes (Other)
  Sender: FDA-Public Use
  Company Number: JP-ASTELLAS-2013JP010315

PATIENT
  Age: 56 Year
  Sex: Male

DRUGS (2)
  1. PROTOPIC [Suspect]
     Indication: DERMATITIS ATOPIC
     Dosage: 0.1 %, UNK
     Route: 061
     Dates: start: 20130725, end: 2013
  2. REMERON [Concomitant]
     Dosage: UNK
     Route: 048
     Dates: end: 20130902

REACTIONS (1)
  - Central nervous system lymphoma [Unknown]
